FAERS Safety Report 5044057-6 (Version None)
Quarter: 2006Q2

REPORT INFORMATION
  Report Type: 
  Country: None (occurrence: None)
  Receive Date: 20060601
  Receipt Date: 20060331
  Transmission Date: 20061013
  Serious: No
  Sender: FDA-Public Use
  Company Number: US200604000133

PATIENT
  Age: 75 Year
  Sex: Female

DRUGS (10)
  1. CYMBALTA [Suspect]
     Indication: DYSTHYMIC DISORDER
     Dosage: 30 MG, DAILY (1/D)
     Dates: start: 20060104, end: 20060121
  2. PROZAC [Suspect]
  3. ZYPREXA [Suspect]
  4. CELEXA [Concomitant]
  5. LEVOXYL [Concomitant]
  6. FOSAMAX /ITA/ (ALENDRONATE SODIUM) [Concomitant]
  7. CALCIUM (CALCIUM) [Concomitant]
  8. MULTIVITAMIN [Concomitant]
  9. AMINO ACIDS NOS (AMINO ACIDS NOS) [Concomitant]
  10. MELATONIN (MELATONIN) [Concomitant]

REACTIONS (5)
  - ADVERSE DRUG REACTION [None]
  - APPETITE DISORDER [None]
  - DEPRESSION [None]
  - DRUG INEFFECTIVE [None]
  - TINNITUS [None]
